FAERS Safety Report 18649500 (Version 8)
Quarter: 2024Q3

REPORT INFORMATION
  Report Type: Spontaneous
  Country: CA (occurrence: CA)
  Receive Date: 20201222
  Receipt Date: 20240822
  Transmission Date: 20241016
  Serious: Yes (Other)
  Sender: PFIZER
  Company Number: CA-PFIZER INC-2020400825

PATIENT
  Age: 49 Year
  Sex: Male

DRUGS (10)
  1. SOMAVERT [Suspect]
     Active Substance: PEGVISOMANT
     Indication: Acromegaly
     Dosage: 15 MG, DAILY
     Route: 058
     Dates: start: 20201016, end: 202012
  2. SOMAVERT [Suspect]
     Active Substance: PEGVISOMANT
     Dosage: 15 MG, DAILY (7X/WEEK), DISCONTINUED
     Route: 058
  3. SOMAVERT [Suspect]
     Active Substance: PEGVISOMANT
     Dosage: 20 MG, DAILY (7X/WEEK), DISCONTINUED
     Route: 058
  4. CITALOPRAM [Concomitant]
     Active Substance: CITALOPRAM\CITALOPRAM HYDROBROMIDE
     Dosage: 20 MG, Q UNK
     Route: 065
  5. DOSTINEX [Concomitant]
     Active Substance: CABERGOLINE
     Dosage: 0.5 MG, 2X/WEEK
  6. METOPROLOL [Concomitant]
     Active Substance: METOPROLOL
     Dosage: 50 MG, Q UNK
     Route: 065
  7. PRO RAMIPRIL [Concomitant]
     Dosage: 2.5 G,Q UNK
     Route: 065
  8. SANDOSTATIN [Concomitant]
     Active Substance: OCTREOTIDE ACETATE
     Dosage: UNK
  9. LANREOTIDE [Concomitant]
     Active Substance: LANREOTIDE
     Dosage: 60 MG, MONTHLY (Q MONTH)
     Route: 065
  10. RAMIPRIL [Concomitant]
     Active Substance: RAMIPRIL
     Dosage: 2.5 MG (1DF)
     Route: 065

REACTIONS (8)
  - Neoplasm [Unknown]
  - Therapeutic product effect incomplete [Recovering/Resolving]
  - Headache [Unknown]
  - Libido increased [Unknown]
  - Insulin-like growth factor increased [Unknown]
  - Off label use [Unknown]
  - Product use issue [Unknown]
  - Product administration interrupted [Unknown]

NARRATIVE: CASE EVENT DATE: 20201001
